FAERS Safety Report 13800983 (Version 1)
Quarter: 2017Q3

REPORT INFORMATION
  Report Type: Spontaneous
  Country: FR (occurrence: FR)
  Receive Date: 20170727
  Receipt Date: 20170727
  Transmission Date: 20171127
  Serious: Yes (Death)
  Sender: FDA-Public Use
  Company Number: FR-TEVA-790373ROM

PATIENT
  Age: 35 Year
  Sex: Male
  Weight: 46 kg

DRUGS (5)
  1. ETOPOSIDE TEVA [Suspect]
     Active Substance: ETOPOSIDE
     Indication: DIFFUSE LARGE B-CELL LYMPHOMA STAGE IV
     Dosage: 320 MILLIGRAM DAILY; DAY 2 TO DAY 5 OF CYVE PROTOCOL (CYTARABINE, ETOPOSIDE)
     Route: 042
     Dates: start: 20160717, end: 20160720
  2. CYTARABINE SANDOZ [Suspect]
     Active Substance: CYTARABINE
     Indication: DIFFUSE LARGE B-CELL LYMPHOMA STAGE IV
     Dosage: 80 MILLIGRAM DAILY; DAY 1 TO DAY 5 OF CYVE PROTOCOL (CYTARABINE, ETOPOSIDE)
     Route: 042
     Dates: start: 20160716, end: 20160720
  3. ZOPHREN [Concomitant]
     Active Substance: ONDANSETRON
     Indication: PROPHYLAXIS OF NAUSEA AND VOMITING
     Route: 042
     Dates: start: 20160716, end: 20160720
  4. CYTARABINE SANDOZ [Suspect]
     Active Substance: CYTARABINE
     Dosage: 4800 MILLIGRAM DAILY; DAY 2 TO DAY 5 OF CYVE PROTOCOL (CYTARABINE, ETOPOSIDE)
     Route: 042
     Dates: start: 20160717, end: 20160720
  5. METHYLPREDNISOLONE MYLAN [Concomitant]
     Active Substance: METHYLPREDNISOLONE
     Indication: PROPHYLAXIS OF NAUSEA AND VOMITING
     Dosage: 80 MILLIGRAM DAILY;
     Route: 041
     Dates: start: 20160717, end: 20160720

REACTIONS (4)
  - Septic shock [Fatal]
  - Bone marrow failure [Fatal]
  - Pseudomonal bacteraemia [Fatal]
  - Pneumonia pseudomonal [Fatal]

NARRATIVE: CASE EVENT DATE: 20160730
